FAERS Safety Report 10159739 (Version 1)
Quarter: 2014Q2

REPORT INFORMATION
  Report Type: Spontaneous
  Country: PH (occurrence: PH)
  Receive Date: 20140508
  Receipt Date: 20140508
  Transmission Date: 20141212
  Serious: Yes (Death, Other)
  Sender: FDA-Public Use
  Company Number: PH-009507513-1405PHL003462

PATIENT
  Age: 76 Year
  Sex: Female

DRUGS (1)
  1. JANUMET [Suspect]
     Dosage: 50/1000 MG ONE TABLET ONCE A DAY
     Route: 048

REACTIONS (1)
  - Myocardial infarction [Fatal]
